FAERS Safety Report 25396101 (Version 1)
Quarter: 2025Q2

REPORT INFORMATION
  Report Type: Spontaneous
  Country: US (occurrence: US)
  Receive Date: 20250604
  Receipt Date: 20250604
  Transmission Date: 20250716
  Serious: No
  Sender: QUAGEN PHARMACEUTICALS
  Company Number: US-QUAGEN-2025QUASPO00368

PATIENT

DRUGS (3)
  1. LEVETIRACETAM [Suspect]
     Active Substance: LEVETIRACETAM
     Indication: Facial spasm
     Route: 065
  2. CARBAMAZEPINE [Suspect]
     Active Substance: CARBAMAZEPINE
     Indication: Facial spasm
     Route: 065
  3. BACLOFEN [Suspect]
     Active Substance: BACLOFEN
     Indication: Facial spasm
     Route: 065

REACTIONS (6)
  - Feeling drunk [Unknown]
  - Blepharospasm [Unknown]
  - Sedation [Unknown]
  - Somnolence [Unknown]
  - Vision blurred [Unknown]
  - Drug ineffective [Unknown]
